FAERS Safety Report 6158081-3 (Version None)
Quarter: 2009Q2

REPORT INFORMATION
  Report Type: 
  Country: None (occurrence: None)
  Receive Date: 20090417
  Receipt Date: 20070309
  Transmission Date: 20091009
  Serious: Yes (Hospitalization, Disabling, Congenital Anomaly)
  Sender: FDA-Public Use
  Company Number: US-ASTRAZENECA-2006UW08054

PATIENT
  Age: 14594 Day
  Sex: Female
  Weight: 58.1 kg

DRUGS (29)
  1. SEROQUEL [Suspect]
     Indication: DEPRESSION
     Dosage: 25-50 MG
     Route: 048
     Dates: start: 20050116
  2. SEROQUEL [Suspect]
     Indication: ANXIETY
     Dosage: 25-50 MG
     Route: 048
     Dates: start: 20050116
  3. ATIVAN [Concomitant]
  4. PROZAC [Concomitant]
  5. KLONOPIN [Concomitant]
  6. PREDNISONE [Concomitant]
  7. AVELOX [Concomitant]
  8. GLUCOPHAGE [Concomitant]
  9. GLUCOTROL [Concomitant]
  10. LANTUS [Concomitant]
  11. MORPHINE [Concomitant]
  12. VISTARIL [Concomitant]
  13. NEURONTIN [Concomitant]
  14. REQUIP [Concomitant]
  15. GLYBURIDE [Concomitant]
  16. MULTI-VITAMINS [Concomitant]
  17. GUAIFENESIN [Concomitant]
  18. LOPID [Concomitant]
  19. PREVACID [Concomitant]
  20. LAMICTAL [Concomitant]
  21. REGLAN [Concomitant]
  22. ALLEGRA [Concomitant]
  23. ZITHROMAX [Concomitant]
  24. SOLU-MEDROL [Concomitant]
  25. DIFLUCAN [Concomitant]
  26. THEOPHYLLINE [Concomitant]
  27. NITROGLYCERIN [Concomitant]
  28. SONATA [Concomitant]
  29. TRAMADOL HYDROCHLORIDE [Concomitant]

REACTIONS (38)
  - ABDOMINAL PAIN [None]
  - ACUTE RESPIRATORY FAILURE [None]
  - ACUTE STRESS DISORDER [None]
  - ANAEMIA [None]
  - ANXIETY [None]
  - ASTHMA [None]
  - BACK PAIN [None]
  - BRONCHOSPASM [None]
  - CHRONIC OBSTRUCTIVE PULMONARY DISEASE [None]
  - COUGH [None]
  - DIABETES MELLITUS [None]
  - DIZZINESS [None]
  - DRUG TOXICITY [None]
  - GASTRITIS [None]
  - GASTROENTERITIS [None]
  - HAEMATEMESIS [None]
  - HEPATITIS B [None]
  - HYPERGLYCAEMIA [None]
  - HYPERLIPIDAEMIA [None]
  - HYPOXIA [None]
  - ILL-DEFINED DISORDER [None]
  - JOINT INJURY [None]
  - LEUKOCYTOSIS [None]
  - LUNG INFILTRATION [None]
  - NECK PAIN [None]
  - OEDEMA PERIPHERAL [None]
  - ORAL CANDIDIASIS [None]
  - PELVIC PAIN [None]
  - PEPTIC ULCER REACTIVATED [None]
  - PNEUMONIA [None]
  - PNEUMONIA ASPIRATION [None]
  - PNEUMONIA KLEBSIELLA [None]
  - PYREXIA [None]
  - RESTLESS LEGS SYNDROME [None]
  - SEPSIS SYNDROME [None]
  - TACHYCARDIA [None]
  - TUBERCULOSIS [None]
  - WHEEZING [None]
